FAERS Safety Report 9483422 (Version 1)
Quarter: 2013Q3

REPORT INFORMATION
  Report Type: Spontaneous
  Country: US (occurrence: US)
  Receive Date: 20130828
  Receipt Date: 20130828
  Transmission Date: 20140515
  Serious: Yes (Death)
  Sender: FDA-Public Use
  Company Number: US-AMGEN-KDL268240

PATIENT
  Sex: Female

DRUGS (8)
  1. PROCRIT [Suspect]
     Indication: ANAEMIA
     Dosage: 40000 IU, QWK
     Route: 065
     Dates: start: 20070312
  2. ALBUTEROL INHALER [Concomitant]
  3. LORAZEPAM [Concomitant]
  4. CALCIUM [Concomitant]
  5. MAGNESIUM [Concomitant]
  6. ZINC [Concomitant]
  7. IBUPROFEN [Concomitant]
  8. LISINOPRIL [Concomitant]

REACTIONS (1)
  - Death [Fatal]
